FAERS Safety Report 6817597-4 (Version None)
Quarter: 2010Q3

REPORT INFORMATION
  Report Type: 
  Country: None (occurrence: None)
  Receive Date: 20100706
  Receipt Date: 20100623
  Transmission Date: 20110219
  Serious: Yes (Other)
  Sender: FDA-Public Use
  Company Number: PHEH2006US12894

PATIENT
  Sex: Male
  Weight: 81.633 kg

DRUGS (4)
  1. ZOMETA [Suspect]
     Dosage: 4MG
     Route: 042
     Dates: start: 20040101, end: 20050901
  2. LUPRON [Concomitant]
  3. CASODEX [Concomitant]
     Dosage: UNK
     Dates: start: 20040101
  4. ANTIBIOTICS [Concomitant]

REACTIONS (11)
  - ANAEMIA [None]
  - AORTIC ANEURYSM [None]
  - FLANK PAIN [None]
  - GINGIVAL DISORDER [None]
  - IMPAIRED HEALING [None]
  - OPEN WOUND [None]
  - OSTEOMYELITIS [None]
  - OSTEONECROSIS OF JAW [None]
  - PAIN IN JAW [None]
  - TOOTH DISORDER [None]
  - TOOTH EXTRACTION [None]
